FAERS Safety Report 24904128 (Version 1)
Quarter: 2025Q1

REPORT INFORMATION
  Report Type: Spontaneous
  Country: FR (occurrence: FR)
  Receive Date: 20250130
  Receipt Date: 20250130
  Transmission Date: 20250409
  Serious: Yes (Life-Threatening, Disabling)
  Sender: ACCORD
  Company Number: None

PATIENT
  Age: 72 Year
  Sex: Male
  Weight: 64 kg

DRUGS (2)
  1. OXALIPLATIN [Suspect]
     Active Substance: OXALIPLATIN
     Indication: Splenic marginal zone lymphoma
     Dates: start: 20240902, end: 20240902
  2. RITUXIMAB [Suspect]
     Active Substance: RITUXIMAB
     Indication: Splenic marginal zone lymphoma
     Dates: start: 20240902, end: 20240902

REACTIONS (3)
  - Disseminated intravascular coagulation [Recovered/Resolved with Sequelae]
  - Thrombotic microangiopathy [Recovering/Resolving]
  - Renal cortical necrosis [Not Recovered/Not Resolved]

NARRATIVE: CASE EVENT DATE: 20240903
